FAERS Safety Report 4349319-3 (Version None)
Quarter: 2004Q2

REPORT INFORMATION
  Report Type: 
  Country: None (occurrence: None)
  Receive Date: 20040426
  Receipt Date: 20040413
  Transmission Date: 20050107
  Serious: Yes (Hospitalization, Other)
  Sender: FDA-Public Use
  Company Number: 163-20785-04040351

PATIENT
  Age: 62 Year
  Sex: Male

DRUGS (3)
  1. THALOMID [Suspect]
     Indication: MULTIPLE MYELOMA
     Dosage: 200 MG, QD, ORAL
     Route: 048
  2. DEXAMETHASONE [Suspect]
     Indication: MULTIPLE MYELOMA
     Dosage: 40 MG, QD; PULSED
  3. ALLOPURINOL [Concomitant]

REACTIONS (6)
  - ERYTHEMA MULTIFORME [None]
  - GINGIVAL EROSION [None]
  - LIP EROSION [None]
  - MUCOSAL EROSION [None]
  - RASH MACULO-PAPULAR [None]
  - SKIN LESION [None]
